FAERS Safety Report 16470525 (Version 1)
Quarter: 2019Q2

REPORT INFORMATION
  Report Type: Spontaneous
  Country: AU (occurrence: AU)
  Receive Date: 20190624
  Receipt Date: 20190624
  Transmission Date: 20190711
  Serious: Yes (Other)
  Sender: FDA-Public Use
  Company Number: AU-COLLEGIUM PHARMACEUTICAL, INC.-AU-2019COL000737

PATIENT
  Sex: Male

DRUGS (3)
  1. TRAMADOL HYDROCHLORIDE. [Suspect]
     Active Substance: TRAMADOL HYDROCHLORIDE
     Indication: PRODUCT USED FOR UNKNOWN INDICATION
     Dosage: UNK
  2. TAPENTADOL [Suspect]
     Active Substance: TAPENTADOL
     Indication: PRODUCT USED FOR UNKNOWN INDICATION
     Dosage: 250 MG, QD
  3. KAPANOL [Concomitant]
     Indication: PRODUCT USED FOR UNKNOWN INDICATION
     Dosage: 100 TO 130 MG

REACTIONS (9)
  - Visual impairment [Unknown]
  - Aggression [Unknown]
  - Headache [Unknown]
  - Libido decreased [Unknown]
  - Somnolence [Unknown]
  - Impaired driving ability [Unknown]
  - Partner stress [Unknown]
  - Drug intolerance [Unknown]
  - Weight decreased [Unknown]
